FAERS Safety Report 8918654 (Version 1)
Quarter: 2012Q4

REPORT INFORMATION
  Report Type: 
  Country: US (occurrence: US)
  Receive Date: 20121120
  Receipt Date: 20121120
  Transmission Date: 20130627
  Serious: Yes (Other)
  Sender: FDA-Public Use
  Company Number: US-ASTRAZENECA-2012SE22790

PATIENT
  Age: 48 Year
  Sex: Male

DRUGS (24)
  1. NEXIUM [Suspect]
     Route: 048
     Dates: start: 20120111
  2. NEXIUM [Suspect]
     Dosage: UNKNOWN
     Route: 048
  3. LISINOPRIL [Concomitant]
     Route: 048
     Dates: start: 20120116
  4. MIRALAX [Concomitant]
     Route: 048
     Dates: start: 20110420
  5. NOVOLOG FLEXPEN [Concomitant]
     Route: 058
     Dates: start: 20111219
  6. PHOSLO [Concomitant]
     Dosage: 4 CAPSULES WITH EACH MEAL 2 WITH A SNACK
     Route: 048
     Dates: start: 20120321
  7. SYNTHROID [Concomitant]
     Route: 048
     Dates: start: 20120109
  8. ZOCOR [Concomitant]
     Route: 048
     Dates: start: 20110622
  9. ZOLOFT [Concomitant]
     Route: 048
     Dates: start: 20111202
  10. VENOFER [Concomitant]
     Dosage: 200 MG EACH DIALYSIS X 5 DOSES (5 GIVEN OF 5)
     Route: 042
     Dates: start: 20120322, end: 20120402
  11. EPOGEN [Concomitant]
     Dosage: 7500 UNITS EACH DIALYSIS
     Route: 042
     Dates: start: 20120322
  12. CLARITIN D 12 HOUR [Concomitant]
     Dosage: 1 TABLET, DAILY, AS REQUIRED
     Route: 048
     Dates: start: 20120404
  13. FIBERCON [Concomitant]
     Dosage: 1 TABLET, THREE TIMES A DAY, AS NEEDED
     Route: 048
     Dates: start: 20110221
  14. IMODIUM [Concomitant]
     Indication: DIARRHOEA
     Dosage: 1 TABLET, EVERY 6 HOURS 1-2 TABS AS REQUIRED
     Route: 048
     Dates: start: 20120119
  15. PERCOCET 5/325 [Concomitant]
     Indication: PAIN
     Dosage: TABLET OF 5/325 MG, EVERY 6 HOURS, AS REQUIRED
     Route: 048
     Dates: start: 20110111
  16. PHENERGAN [Concomitant]
     Indication: NAUSEA
     Dosage: 25 MG, EVERY 6 HOURS, 20 AS REQUIRED
     Route: 048
     Dates: start: 20120119
  17. TYLENOL [Concomitant]
     Indication: PYREXIA
     Dosage: 500 MG, 4-6 HOURS, 1-2 TABS AS REQUIRED
     Route: 048
     Dates: start: 20120119
  18. AMLODIPINE [Concomitant]
     Route: 048
     Dates: start: 20110629
  19. CLONIDINE [Concomitant]
     Dosage: 0.05 MG, THREE TIMES A DAY (1/2 OF 0.1 MG TABLET)
     Route: 048
     Dates: start: 20110909
  20. COREG [Concomitant]
     Route: 065
     Dates: start: 20110725
  21. ERGOCALCIFEROL [Concomitant]
     Dosage: 50000 INTERNATIONAL UNITS WEEKLY X 12 WEEKS
     Route: 048
     Dates: start: 20120113
  22. FUROSEMIDE [Concomitant]
     Indication: URINE OUTPUT DECREASED
     Route: 048
     Dates: start: 20110622
  23. GENTAMICIN 0.1 % [Concomitant]
     Dosage: 15 GRAMS, SKIN, DAILY
     Route: 061
     Dates: start: 20110420
  24. LANTUS [Concomitant]
     Route: 058
     Dates: start: 20111219

REACTIONS (1)
  - Gastrointestinal haemorrhage [Unknown]
